FAERS Safety Report 25500020 (Version 2)
Quarter: 2025Q3

REPORT INFORMATION
  Report Type: Spontaneous
  Country: CA (occurrence: CA)
  Receive Date: 20250701
  Receipt Date: 20250707
  Transmission Date: 20251021
  Serious: Yes (Hospitalization)
  Sender: MYLAN
  Company Number: CA-MYLANLABS-2025M1054440

PATIENT
  Age: 13 Year
  Sex: Male

DRUGS (8)
  1. ISOTRETINOIN [Suspect]
     Active Substance: ISOTRETINOIN
     Indication: Acne conglobata
     Dosage: 0.5 MILLIGRAM/KILOGRAM, QD, (1EVERY 1 DAY)
  2. ISOTRETINOIN [Suspect]
     Active Substance: ISOTRETINOIN
     Dosage: 0.5 MILLIGRAM/KILOGRAM, QD, (1EVERY 1 DAY)
  3. ISOTRETINOIN [Suspect]
     Active Substance: ISOTRETINOIN
  4. DOXYCYCLINE [Suspect]
     Active Substance: DOXYCYCLINE
     Indication: Acne conglobata
     Dosage: 1 DOSAGE FORM, BID
  5. PREDNISONE [Suspect]
     Active Substance: PREDNISONE
     Indication: Neutrophilic dermatosis
     Dosage: 1 DOSAGE FORM, QD (1 EVERY 1 DAY)
  6. DOXYCYCLINE [Suspect]
     Active Substance: DOXYCYCLINE
     Indication: Acne conglobata
     Dosage: 2 DOSAGE FORM, QD (2 EVERY 1 DAY)
  7. DOXYCYCLINE [Suspect]
     Active Substance: DOXYCYCLINE
     Dosage: 1 DOSAGE FORM, BID (1 EVERY 12 HOUR)
  8. DOXYCYCLINE HYDROCHLORIDE [Suspect]
     Active Substance: DOXYCYCLINE HYDROCHLORIDE
     Indication: Acne conglobata

REACTIONS (22)
  - Neutrophilic dermatosis [Unknown]
  - Pyrexia [Unknown]
  - C-reactive protein increased [Unknown]
  - Condition aggravated [Unknown]
  - Skin ulcer [Unknown]
  - Transaminases increased [Unknown]
  - Acute febrile neutrophilic dermatosis [Unknown]
  - Pyoderma gangrenosum [Unknown]
  - Rebound effect [Unknown]
  - Skin plaque [Unknown]
  - Acne conglobata [Unknown]
  - Myalgia [Unknown]
  - Acne fulminans [Unknown]
  - Pain [Unknown]
  - Red blood cell sedimentation rate increased [Unknown]
  - Leukocytosis [Unknown]
  - Arthralgia [Unknown]
  - Acne [Unknown]
  - Drug ineffective [Unknown]
  - Intentional product use issue [Unknown]
  - Off label use [Unknown]
  - Product administered to patient of inappropriate age [Unknown]
